FAERS Safety Report 7601273-4 (Version None)
Quarter: 2011Q3

REPORT INFORMATION
  Report Type: 
  Country: None (occurrence: None)
  Receive Date: 20110711
  Receipt Date: 20110704
  Transmission Date: 20111222
  Serious: Yes (Hospitalization)
  Sender: FDA-Public Use
  Company Number: PHHY2011FR52635

PATIENT
  Sex: Male

DRUGS (11)
  1. CEFPODOXIME PROXETIL [Suspect]
     Indication: INFECTION
     Dosage: 1 DOSE-WEIGHT CORRESPONDING TO 8 KG IN THE MORNING AND 1 DOSE-WEIGHT CORRESPONDING TO 9KG IN EVENING
     Route: 048
     Dates: start: 20110601, end: 20110603
  2. PULMICORT [Concomitant]
     Dosage: 0.50 MG/2 ML
  3. GLYCERINE [Concomitant]
     Dosage: UNK
  4. OTIPAX [Concomitant]
  5. ACETAMINOPHEN [Concomitant]
     Dosage: 150 MG
     Route: 054
  6. GAVISCON [Concomitant]
     Dosage: ORAL SUSPENSION
  7. POLYSILANE UPSA [Concomitant]
  8. UVESTEROL D [Concomitant]
     Dosage: 1500 UI/ML ORAL SOLUTION
  9. BETAMETHASONE BIOGARAN [Concomitant]
     Dosage: 0.5 % EAR DROPS
  10. CELESTONE [Concomitant]
     Dosage: 0.05 %, UNK
  11. RHINOTROPHYL [Concomitant]
     Dosage: NASAL SPRAY

REACTIONS (1)
  - GASTRITIS [None]
